FAERS Safety Report 4964400-3 (Version None)
Quarter: 2006Q1

REPORT INFORMATION
  Report Type: 
  Country: None (occurrence: None)
  Receive Date: 20060331
  Receipt Date: 20060316
  Transmission Date: 20060701
  Serious: Yes (Death)
  Sender: FDA-Public Use
  Company Number: TNZFR200600031

PATIENT
  Age: 63 Year
  Sex: Male
  Weight: 100 kg

DRUGS (5)
  1. INNOHEP [Suspect]
     Indication: DEEP VEIN THROMBOSIS
     Dosage: 18000 IU (18000 IU, ONCE DAILY), SUBCUTANEOUS
     Route: 058
     Dates: start: 20060103, end: 20060111
  2. INNOHEP [Suspect]
     Indication: PULMONARY EMBOLISM
     Dosage: 18000 IU (18000 IU, ONCE DAILY), SUBCUTANEOUS
     Route: 058
     Dates: start: 20060103, end: 20060111
  3. FRAXODI (NADROPARIN CALCIUM) [Suspect]
     Indication: DEEP VEIN THROMBOSIS
     Dosage: 15200 IU (15200 IU, ONCE DAILY), SUBCUTANEOUS
     Route: 058
     Dates: start: 20051201, end: 20060103
  4. FRAXODI (NADROPARIN CALCIUM) [Suspect]
     Indication: PULMONARY EMBOLISM
     Dosage: 15200 IU (15200 IU, ONCE DAILY), SUBCUTANEOUS
     Route: 058
     Dates: start: 20051201, end: 20060103
  5. VIT K ANTAGONISTS (VIT K ANTAGONISTS) [Concomitant]

REACTIONS (8)
  - ANTI-PLATELET ANTIBODY POSITIVE [None]
  - CARCINOEMBRYONIC ANTIGEN INCREASED [None]
  - HEMIPLEGIA [None]
  - ISCHAEMIC STROKE [None]
  - MULTI-ORGAN FAILURE [None]
  - NEURON-SPECIFIC ENOLASE INCREASED [None]
  - THROMBOCYTOPENIA [None]
  - TUMOUR MARKER INCREASED [None]
